FAERS Safety Report 9322488 (Version 1)
Quarter: 2013Q2

REPORT INFORMATION
  Report Type: Spontaneous
  Country: JP (occurrence: JP)
  Receive Date: 20130531
  Receipt Date: 20130531
  Transmission Date: 20140414
  Serious: Yes (Other)
  Sender: FDA-Public Use
  Company Number: PHHY2013JP052909

PATIENT
  Age: 77 Year
  Sex: Female

DRUGS (1)
  1. 5-FLUOROURACIL [Suspect]
     Indication: LUNG ADENOCARCINOMA

REACTIONS (2)
  - Acute promyelocytic leukaemia [Unknown]
  - Pancytopenia [Unknown]
